FAERS Safety Report 4977609-X (Version None)
Quarter: 2006Q2

REPORT INFORMATION
  Report Type: 
  Country: None (occurrence: None)
  Receive Date: 20060414
  Receipt Date: 20060404
  Transmission Date: 20061013
  Serious: Yes (Other)
  Sender: FDA-Public Use
  Company Number: 200611450BCC

PATIENT
  Age: 83 Year
  Sex: Female
  Weight: 68.4932 kg

DRUGS (9)
  1. ALEVE [Suspect]
     Indication: BURSITIS
     Dosage: 220 MG, PRN, ORAL
     Route: 048
  2. CALAN [Concomitant]
  3. CARDURA [Concomitant]
  4. CALCIUM GLUCONATE [Concomitant]
  5. COSOPT [Concomitant]
  6. ALPHAGAN [Concomitant]
  7. XANAX [Concomitant]
  8. FISH OIL [Concomitant]
  9. SPRING VALLEY MULTIVITAMIN [Concomitant]

REACTIONS (2)
  - CONDITION AGGRAVATED [None]
  - GLAUCOMA [None]
